FAERS Safety Report 7904793-8 (Version None)
Quarter: 2011Q4

REPORT INFORMATION
  Report Type: 
  Country: None (occurrence: None)
  Receive Date: 20111109
  Receipt Date: 20111026
  Transmission Date: 20120403
  Serious: Yes (Other)
  Sender: FDA-Public Use
  Company Number: PHHY2011JP95240

PATIENT
  Age: 25 Year
  Sex: Female

DRUGS (2)
  1. TACROLIMUS [Suspect]
     Indication: APLASTIC ANAEMIA
  2. CYCLOSPORINE [Suspect]
     Indication: APLASTIC ANAEMIA

REACTIONS (7)
  - PSYCHIATRIC SYMPTOM [None]
  - HAEMOCHROMATOSIS [None]
  - HEPATIC FUNCTION ABNORMAL [None]
  - CEREBRAL ATROPHY [None]
  - TOXICITY TO VARIOUS AGENTS [None]
  - TOXIC ENCEPHALOPATHY [None]
  - NEUROTOXICITY [None]
